FAERS Safety Report 9837271 (Version 1)
Quarter: 2014Q1

REPORT INFORMATION
  Report Type: Spontaneous
  Country: US (occurrence: None)
  Receive Date: 20140117
  Receipt Date: 20140117
  Transmission Date: 20141002
  Serious: Yes (Life-Threatening, Disabling, Other)
  Sender: FDA-Public Use
  Company Number: None

PATIENT
  Age: 75 Year
  Sex: Female
  Weight: 115.67 kg

DRUGS (2)
  1. KLOR-CON [Suspect]
     Indication: MINERAL SUPPLEMENTATION
     Dosage: 2 TABLETS
     Route: 048
     Dates: start: 20131201, end: 20131224
  2. CRANBERRY EXTRACT [Concomitant]

REACTIONS (4)
  - Medication residue present [None]
  - Diarrhoea [None]
  - Product quality issue [None]
  - Product substitution issue [None]
